FAERS Safety Report 5854656-7 (Version None)
Quarter: 2008Q3

REPORT INFORMATION
  Report Type: 
  Country: None (occurrence: None)
  Receive Date: 20080822
  Receipt Date: 20080811
  Transmission Date: 20090109
  Serious: Yes (Other)
  Sender: FDA-Public Use
  Company Number: US-PFIZER INC-2008067009

PATIENT
  Age: 45 Year
  Sex: Male

DRUGS (4)
  1. XANAX [Suspect]
  2. DIAZEPAM [Suspect]
  3. ACETAMINOPHEN [Suspect]
  4. AMBIEN [Suspect]

REACTIONS (3)
  - DRUG ABUSE [None]
  - DRUG DEPENDENCE [None]
  - IMPAIRED DRIVING ABILITY [None]
